FAERS Safety Report 5477072-9 (Version None)
Quarter: 2007Q4

REPORT INFORMATION
  Report Type: 
  Country: None (occurrence: None)
  Receive Date: 20071002
  Receipt Date: 20071002
  Transmission Date: 20080405
  Serious: Yes (Death, Hospitalization)
  Sender: FDA-Public Use
  Company Number: None

PATIENT
  Sex: Female
  Weight: 65.7716 kg

DRUGS (1)
  1. INFLIXIMAB-LAST DOSE 3 WEEKS AGO [Suspect]
     Indication: CROHN'S DISEASE

REACTIONS (13)
  - ABDOMINAL DISTENSION [None]
  - ACID BASE BALANCE ABNORMAL [None]
  - ACUTE RESPIRATORY DISTRESS SYNDROME [None]
  - CLOSTRIDIUM DIFFICILE COLITIS [None]
  - COAGULOPATHY [None]
  - HEPATIC FAILURE [None]
  - HYPOTENSION [None]
  - IMMUNOSUPPRESSION [None]
  - NAUSEA [None]
  - SEPSIS [None]
  - SERUM SICKNESS [None]
  - THROMBOCYTOPENIA [None]
  - VOMITING [None]
